FAERS Safety Report 5969096-X (Version None)
Quarter: 2008Q4

REPORT INFORMATION
  Report Type: 
  Country: None (occurrence: None)
  Receive Date: 20081126
  Receipt Date: 20080815
  Transmission Date: 20090506
  Serious: No
  Sender: FDA-Public Use
  Company Number: US-ABBOTT-08P-163-0471008-00

PATIENT
  Sex: Female
  Weight: 70.824 kg

DRUGS (7)
  1. SIMCOR [Suspect]
     Indication: BLOOD CHOLESTEROL
     Dosage: 500/20MG EVERY NIGHT
     Dates: start: 20080806, end: 20080812
  2. SIMCOR [Suspect]
     Dosage: 1000/20 MG EVERY NIGHT
     Dates: start: 20080812, end: 20080820
  3. ACETYLSALICYLIC ACID SRT [Concomitant]
     Indication: PROPHYLAXIS
     Route: 048
  4. DYAZIDE [Concomitant]
     Indication: BLOOD PRESSURE
     Dosage: 75/50 MG DAILY
     Route: 048
  5. POTASSIUM CR [Concomitant]
     Indication: DRUG USE FOR UNKNOWN INDICATION
     Route: 048
  6. PAROXETINE HCL [Concomitant]
     Indication: ANXIETY
     Route: 048
  7. CLOPIDOGREL [Concomitant]
     Indication: DRUG USE FOR UNKNOWN INDICATION
     Route: 048

REACTIONS (12)
  - ABDOMINAL DISCOMFORT [None]
  - BACK PAIN [None]
  - DIZZINESS [None]
  - FLUSHING [None]
  - HEADACHE [None]
  - MUSCLE SPASMS [None]
  - MYALGIA [None]
  - NAUSEA [None]
  - NIGHTMARE [None]
  - PRURITUS [None]
  - RASH [None]
  - SOMNOLENCE [None]
